FAERS Safety Report 13147999 (Version 2)
Quarter: 2017Q2

REPORT INFORMATION
  Report Type: Spontaneous
  Country: US (occurrence: US)
  Receive Date: 20170125
  Receipt Date: 20170407
  Transmission Date: 20170830
  Serious: No
  Sender: FDA-Public Use
  Company Number: US-009507513-1701USA003118

PATIENT
  Age: 32 Year
  Sex: Female
  Weight: 61.68 kg

DRUGS (3)
  1. NEXPLANON [Suspect]
     Active Substance: ETONOGESTREL
     Indication: CONTRACEPTION
     Dosage: 68 MG/ONCE EVERY 3 YEARS
     Route: 059
     Dates: start: 20161110, end: 20170112
  2. NEXPLANON [Suspect]
     Active Substance: ETONOGESTREL
     Dosage: 68 MG/ONCE EVERY 3 YEARS
     Route: 059
     Dates: start: 201211, end: 201611
  3. IBUPROFEN. [Concomitant]
     Active Substance: IBUPROFEN
     Dosage: 800 MG, TID
     Route: 048

REACTIONS (11)
  - Implant site erythema [Recovered/Resolved]
  - Polymenorrhoea [Unknown]
  - Implant site pain [Recovered/Resolved]
  - Pyrexia [Recovered/Resolved]
  - Implant site discharge [Unknown]
  - Incorrect drug administration duration [Unknown]
  - Breast mass [Unknown]
  - Breast pain [Unknown]
  - Menstruation irregular [Unknown]
  - Implant site warmth [Not Recovered/Not Resolved]
  - Breast discharge [Unknown]

NARRATIVE: CASE EVENT DATE: 201601
